FAERS Safety Report 12412456 (Version 1)
Quarter: 2016Q2

REPORT INFORMATION
  Report Type: Spontaneous
  Country: US (occurrence: US)
  Receive Date: 20160527
  Receipt Date: 20160527
  Transmission Date: 20160815
  Serious: Yes (Death)
  Sender: FDA-Public Use
  Company Number: US-TAIHO ONCOLOGY INC-EU-2016-01059

PATIENT
  Sex: Male

DRUGS (5)
  1. LONSURF [Suspect]
     Active Substance: TIPIRACIL HYDROCHLORIDE\TRIFLURIDINE
     Indication: RECTOSIGMOID CANCER
     Dosage: 120 MG
     Route: 048
     Dates: start: 20160225
  2. FINASTERIDE. [Concomitant]
     Active Substance: FINASTERIDE
     Dosage: NI
  3. SPIRONOLACTONE. [Concomitant]
     Active Substance: SPIRONOLACTONE
     Dosage: NI
  4. FUROSEMIDE. [Concomitant]
     Active Substance: FUROSEMIDE
     Dosage: NI
  5. FENTANYL. [Concomitant]
     Active Substance: FENTANYL
     Dosage: NI

REACTIONS (1)
  - Death [Fatal]
